FAERS Safety Report 4822258-7 (Version None)
Quarter: 2005Q4

REPORT INFORMATION
  Report Type: 
  Country: None (occurrence: None)
  Receive Date: 20051107
  Receipt Date: 20050201
  Transmission Date: 20060501
  Serious: Yes (Life-Threatening, Hospitalization)
  Sender: FDA-Public Use
  Company Number: NO-MERCK-0502NOR00017

PATIENT
  Age: 61 Year
  Sex: Male

DRUGS (8)
  1. VIOXX [Suspect]
     Indication: BACK PAIN
     Route: 048
     Dates: start: 20030520, end: 20040301
  2. VIOXX [Suspect]
     Route: 048
     Dates: start: 20040301, end: 20041001
  3. CELECOXIB [Suspect]
     Indication: BACK PAIN
     Route: 048
     Dates: start: 20041001
  4. ASPIRIN AND MAGNESIUM OXIDE [Concomitant]
     Indication: HYPERTENSION
     Route: 048
     Dates: start: 19980501
  5. HYDROCHLOROTHIAZIDE AND LOSARTAN POTASSIUM [Concomitant]
     Indication: HYPERTENSION
     Route: 048
     Dates: start: 20041001, end: 20041101
  6. HYDROCHLOROTHIAZIDE AND LOSARTAN POTASSIUM [Concomitant]
     Route: 048
     Dates: start: 20041101
  7. COZAAR [Concomitant]
     Indication: HYPERTENSION
     Route: 047
     Dates: start: 20040901, end: 20041001
  8. METOPROLOL TARTRATE [Concomitant]
     Indication: HYPERTENSION
     Route: 048
     Dates: start: 19980501, end: 20040901

REACTIONS (3)
  - ACUTE MYOCARDIAL INFARCTION [None]
  - CORONARY ARTERY OCCLUSION [None]
  - CORONARY ARTERY STENOSIS [None]
